FAERS Safety Report 7928486-6 (Version None)
Quarter: 2011Q4

REPORT INFORMATION
  Report Type: 
  Country: None (occurrence: None)
  Receive Date: 20111118
  Receipt Date: 20111114
  Transmission Date: 20120403
  Serious: Yes (Death, Life-Threatening, Other)
  Sender: FDA-Public Use
  Company Number: PHHY2011JP43051

PATIENT
  Sex: Male
  Weight: 65 kg

DRUGS (10)
  1. CYCLOPHOSPHAMIDE [Suspect]
     Indication: BONE MARROW TRANSPLANT
     Dosage: 3900 MG, UNK
     Route: 041
     Dates: start: 20100711, end: 20100712
  2. THROMBOMODULIN ALFA [Concomitant]
     Indication: VENOOCCLUSIVE LIVER DISEASE
     Dosage: UNK UKN, UNK
  3. RECOMODULIN [Concomitant]
     Dosage: 25600 IU, UNK
     Route: 042
     Dates: start: 20100721
  4. FUNGUARD [Concomitant]
     Dosage: 150 MG, UNK
     Route: 042
     Dates: start: 20100818, end: 20100824
  5. METHOTREXATE [Concomitant]
     Indication: BONE MARROW TRANSPLANT
     Dosage: UNK UKN, UNK
  6. BUSULFEX [Suspect]
     Indication: BONE MARROW TRANSPLANT
     Dosage: 208 MG, UNK
     Route: 041
     Dates: start: 20100707, end: 20100710
  7. NEORAL [Suspect]
     Dosage: UNK UKN, UNK
  8. VFEND [Concomitant]
     Dosage: 400 MG, UNK
     Route: 048
     Dates: start: 20100825
  9. SANDIMMUNE [Suspect]
     Indication: BONE MARROW TRANSPLANT
     Dosage: 150 MG, UNK
     Route: 041
     Dates: start: 20100713, end: 20100729
  10. SOLU-MEDROL [Concomitant]
     Dosage: 1 G, UNK
     Route: 042
     Dates: start: 20100804, end: 20100807

REACTIONS (13)
  - SYSTEMIC CANDIDA [None]
  - HEPATIC FUNCTION ABNORMAL [None]
  - ASCITES [None]
  - THROMBOTIC MICROANGIOPATHY [None]
  - HISTIOCYTOSIS HAEMATOPHAGIC [None]
  - NEUTROPHIL COUNT INCREASED [None]
  - VENOOCCLUSIVE LIVER DISEASE [None]
  - PLEURAL EFFUSION [None]
  - JAUNDICE [None]
  - CYTOMEGALOVIRUS TEST POSITIVE [None]
  - BILIRUBIN CONJUGATED INCREASED [None]
  - HEPATIC FAILURE [None]
  - WEIGHT INCREASED [None]
